FAERS Safety Report 21267593 (Version 1)
Quarter: 2022Q3

REPORT INFORMATION
  Report Type: Spontaneous
  Country: TR (occurrence: TR)
  Receive Date: 20220829
  Receipt Date: 20220829
  Transmission Date: 20221027
  Serious: No
  Sender: FDA-Public Use
  Company Number: TR-PADAGIS-2022PAD00454

PATIENT

DRUGS (5)
  1. CYCLOSPORINE [Suspect]
     Active Substance: CYCLOSPORINE
     Indication: Graft versus host disease
     Dosage: UNK
     Route: 065
  2. MELPHALAN [Concomitant]
     Active Substance: MELPHALAN
     Indication: Autologous haematopoietic stem cell transplant
     Dosage: 140 MG/M2
     Route: 065
  3. BUSULFAN [Concomitant]
     Active Substance: BUSULFAN
     Indication: Autologous haematopoietic stem cell transplant
     Dosage: 3.2 MG/KG/DAYS
     Route: 042
  4. METHYLPREDNISOLONE [Concomitant]
     Active Substance: METHYLPREDNISOLONE
     Indication: Graft versus host disease
     Dosage: 2 MG/KG/DAY
     Route: 065
  5. TACROLIMUS [Concomitant]
     Active Substance: TACROLIMUS
     Indication: Graft versus host disease
     Dosage: UNK
     Route: 065

REACTIONS (3)
  - Glomerular filtration rate decreased [Unknown]
  - Blood creatinine increased [Unknown]
  - Therapeutic product effect incomplete [Unknown]
